FAERS Safety Report 17866462 (Version 2)
Quarter: 2020Q3

REPORT INFORMATION
  Report Type: Spontaneous
  Country: CA (occurrence: CA)
  Receive Date: 20200605
  Receipt Date: 20200813
  Transmission Date: 20201103
  Serious: Yes (Other)
  Sender: FDA-Public Use
  Company Number: CA-SAMSUNG BIOEPIS-SB-2020-18726

PATIENT
  Age: 60 Year
  Sex: Male

DRUGS (1)
  1. ETANERCEPT [Suspect]
     Active Substance: ETANERCEPT
     Indication: ANKYLOSING SPONDYLITIS
     Route: 058

REACTIONS (7)
  - Bowel movement irregularity [Unknown]
  - Sinusitis [Unknown]
  - Abdominal pain upper [Unknown]
  - Blood pressure systolic increased [Unknown]
  - Urge incontinence [Unknown]
  - Temporomandibular joint syndrome [Unknown]
  - Ear pain [Unknown]
